FAERS Safety Report 17502700 (Version 1)
Quarter: 2020Q1

REPORT INFORMATION
  Report Type: Spontaneous
  Country: US (occurrence: US)
  Receive Date: 20200225
  Receipt Date: 20200225
  Transmission Date: 20200409
  Serious: No
  Sender: FDA-Public Use
  Company Number: None

PATIENT
  Age: 52 Year
  Sex: Male

DRUGS (2)
  1. CAPECITABINE TAB 500MG [Suspect]
     Active Substance: CAPECITABINE
     Dosage: ?          OTHER
     Route: 048
     Dates: start: 201911
  2. OXALIPLATIN. [Concomitant]
     Active Substance: OXALIPLATIN

REACTIONS (5)
  - Metastases to liver [None]
  - Diarrhoea [None]
  - Vomiting [None]
  - Metastases to pelvis [None]
  - Nausea [None]

NARRATIVE: CASE EVENT DATE: 20200130
